FAERS Safety Report 7928598-7 (Version None)
Quarter: 2011Q4

REPORT INFORMATION
  Report Type: 
  Country: None (occurrence: None)
  Receive Date: 20111118
  Receipt Date: 20111108
  Transmission Date: 20120403
  Serious: Yes (Other)
  Sender: FDA-Public Use
  Company Number: US-PERRIGO-11US009855

PATIENT
  Age: 28 Year
  Sex: Female

DRUGS (1)
  1. NAPROXEN SODIUM [Suspect]
     Indication: INTENTIONAL OVERDOSE
     Dosage: 5280 MG, SINGLE
     Route: 048
     Dates: start: 20111107, end: 20111107

REACTIONS (2)
  - VOMITING [None]
  - INTENTIONAL OVERDOSE [None]
